FAERS Safety Report 8275444-0 (Version None)
Quarter: 2012Q2

REPORT INFORMATION
  Report Type: 
  Country: None (occurrence: None)
  Receive Date: 20120411
  Receipt Date: 20120401
  Transmission Date: 20120825
  Serious: Yes (Hospitalization)
  Sender: FDA-Public Use
  Company Number: NL-BAXTER-2012BAX001900

PATIENT
  Sex: Female

DRUGS (3)
  1. IMMUNE GLOBULIN (HUMAN) [Suspect]
     Dosage: 1.00 SUBCUVIA SOLUTION FOR INJECTION 160MG/ML VIALS. 10ML 1X EVERY 7 DAYS
     Route: 058
     Dates: start: 20120308, end: 20120308
  2. IMMUNE GLOBULIN (HUMAN) [Suspect]
     Route: 058
     Dates: start: 20120323, end: 20120323
  3. SYNAGIS [Suspect]
     Route: 065

REACTIONS (3)
  - AUTOIMMUNE DISORDER [None]
  - LOWER RESPIRATORY TRACT INFECTION BACTERIAL [None]
  - LOWER RESPIRATORY TRACT INFECTION FUNGAL [None]
